FAERS Safety Report 7385934-0 (Version None)
Quarter: 2011Q1

REPORT INFORMATION
  Report Type: 
  Country: None (occurrence: None)
  Receive Date: 20110331
  Receipt Date: 20110323
  Transmission Date: 20110831
  Serious: Yes (Hospitalization)
  Sender: FDA-Public Use
  Company Number: US-US-EMD SERONO, INC.-7045430

PATIENT
  Sex: Female
  Weight: 69 kg

DRUGS (5)
  1. REBIF [Suspect]
     Indication: MULTIPLE SCLEROSIS
     Route: 058
     Dates: start: 20100804
  2. SIMVASTATIN [Concomitant]
     Indication: HYPERLIPIDAEMIA
  3. PROZAC [Concomitant]
     Indication: DEPRESSION
     Route: 048
     Dates: start: 20100616
  4. NAMENDA [Concomitant]
     Indication: AMNESIA
     Route: 048
  5. AMANTADINE HCL [Concomitant]
     Indication: FATIGUE
     Route: 048
     Dates: start: 20081111

REACTIONS (3)
  - MEMORY IMPAIRMENT [None]
  - FALL [None]
  - HIP FRACTURE [None]
